FAERS Safety Report 13673979 (Version 1)
Quarter: 2017Q2

REPORT INFORMATION
  Report Type: Spontaneous
  Country: US (occurrence: US)
  Receive Date: 20170620
  Receipt Date: 20170620
  Transmission Date: 20170830
  Serious: Yes (Disabling)
  Sender: FDA-Public Use
  Company Number: None

PATIENT
  Sex: Female
  Weight: 56 kg

DRUGS (3)
  1. CLOMIPHEN CITRATE [Suspect]
     Active Substance: CLOMIPHENE CITRATE
     Indication: ANOVULATORY CYCLE
     Dosage: ?          QUANTITY:2 TABLET(S);?
     Route: 048
  2. CLOMIPHEN CITRATE [Suspect]
     Active Substance: CLOMIPHENE CITRATE
     Indication: POLYCYSTIC OVARIES
     Dosage: ?          QUANTITY:2 TABLET(S);?
     Route: 048
  3. MULTIVITAMINS (PRENATAL VITAMINS) [Concomitant]

REACTIONS (3)
  - Myomectomy [None]
  - Abortion spontaneous [None]
  - Blood thyroid stimulating hormone increased [None]
